FAERS Safety Report 4299423-3 (Version None)
Quarter: 2004Q1

REPORT INFORMATION
  Report Type: 
  Country: None (occurrence: None)
  Receive Date: 20040217
  Receipt Date: 20040202
  Transmission Date: 20041129
  Serious: Yes (Death, Hospitalization)
  Sender: FDA-Public Use
  Company Number: 2003127036

PATIENT
  Age: 14 Year
  Sex: Female

DRUGS (6)
  1. SILDENAFIL (SILDENAFIL) [Suspect]
     Indication: PULMONARY HYPERTENSION
     Dosage: 200 MG (QID), ORAL
     Route: 048
     Dates: start: 20010905, end: 20031201
  2. TRACLEER [Concomitant]
  3. EPOPROSTENOL SODIUM (EPOPROSTENOL SODIUM) [Concomitant]
  4. DESOGESTREL AND ETHINYL ESTRADIOL [Suspect]
  5. IRON (IRON) [Concomitant]
  6. WARFARIN SODIUM [Concomitant]

REACTIONS (5)
  - CARDIAC ARREST [None]
  - COUGH [None]
  - HAEMOPTYSIS [None]
  - LOWER RESPIRATORY TRACT INFECTION [None]
  - OXYGEN SATURATION DECREASED [None]
